FAERS Safety Report 5572485-9 (Version None)
Quarter: 2007Q4

REPORT INFORMATION
  Report Type: 
  Country: None (occurrence: None)
  Receive Date: 20071222
  Receipt Date: 20071213
  Transmission Date: 20080405
  Serious: Yes (Other)
  Sender: FDA-Public Use
  Company Number: DE-PFIZER INC-2007106004

PATIENT
  Age: 35 Year
  Sex: Female

DRUGS (5)
  1. DETRUSITOL SR [Suspect]
     Route: 048
  2. BUSCOPAN PLUS [Concomitant]
  3. TREVILOR [Concomitant]
  4. BACLOFEN [Concomitant]
  5. PROTHIPENDYL [Concomitant]

REACTIONS (4)
  - DRUG ABUSE [None]
  - DRUG INEFFECTIVE [None]
  - DRY MOUTH [None]
  - VISUAL DISTURBANCE [None]
